FAERS Safety Report 11047677 (Version 1)
Quarter: 2015Q2

REPORT INFORMATION
  Report Type: Spontaneous
  Country: US (occurrence: None)
  Receive Date: 20150417
  Receipt Date: 20150417
  Transmission Date: 20150821
  Serious: No
  Sender: FDA-Public Use
  Company Number: None

PATIENT
  Age: 58 Year
  Sex: Female
  Weight: 70.31 kg

DRUGS (9)
  1. CITALOPRAM [Concomitant]
     Active Substance: CITALOPRAM HYDROBROMIDE
  2. CLARITIN [Concomitant]
     Active Substance: LORATADINE
  3. LEVOTHYROXINE [Concomitant]
     Active Substance: LEVOTHYROXINE
  4. TYLENOL SINUS [Concomitant]
     Active Substance: ACETAMINOPHEN\DIPHENHYDRAMINE
  5. OMEPRAZOLE. [Concomitant]
     Active Substance: OMEPRAZOLE
  6. CHLORHEXIDINE RINSE [Concomitant]
  7. ARESTIN [Suspect]
     Active Substance: MINOCYCLINE HYDROCHLORIDE
     Indication: DRUG THERAPY
     Dosage: INJECTION IN TO GUM ONE-TIME
     Dates: start: 20150402
  8. SIMVASTATIN. [Concomitant]
     Active Substance: SIMVASTATIN
  9. ALPRAZOLAM. [Concomitant]
     Active Substance: ALPRAZOLAM

REACTIONS (5)
  - Sleep disorder [None]
  - Decreased appetite [None]
  - Abdominal pain upper [None]
  - Diarrhoea [None]
  - Paraesthesia [None]

NARRATIVE: CASE EVENT DATE: 20150402
